FAERS Safety Report 10621231 (Version 1)
Quarter: 2014Q4

REPORT INFORMATION
  Report Type: Report from Study
  Country: DE (occurrence: DE)
  Receive Date: 20141203
  Receipt Date: 20141203
  Transmission Date: 20150529
  Serious: Yes (Hospitalization, Other)
  Sender: FDA-Public Use
  Company Number: DE-ROCHE-1500449

PATIENT
  Age: 51 Year
  Sex: Male
  Weight: 76 kg

DRUGS (10)
  1. METFORMIN [Concomitant]
     Active Substance: METFORMIN HYDROCHLORIDE
     Route: 065
     Dates: start: 20140417
  2. OMEPRAZOL RATIOPHARM [Concomitant]
     Route: 065
     Dates: start: 20140530
  3. ACTRAPID [Concomitant]
     Active Substance: INSULIN HUMAN
     Dosage: ACCORDING TO BLOOD SUGAR LEVEL
     Route: 065
  4. ACTRAPHANE [Concomitant]
     Active Substance: INSULIN HUMAN
     Route: 058
  5. PEGINTERFERON ALFA-2A [Suspect]
     Active Substance: PEGINTERFERON ALFA-2A
     Indication: CHRONIC HEPATITIS C
     Route: 058
     Dates: start: 20140222, end: 20140516
  6. SOVALDI [Suspect]
     Active Substance: SOFOSBUVIR
     Indication: CHRONIC HEPATITIS C
     Route: 048
     Dates: start: 20140222, end: 20140516
  7. PANTOPRAZOLE [Concomitant]
     Active Substance: PANTOPRAZOLE SODIUM
     Route: 065
     Dates: start: 20140217
  8. RIBAVIRIN. [Suspect]
     Active Substance: RIBAVIRIN
     Indication: CHRONIC HEPATITIS C
     Route: 048
     Dates: start: 20140423, end: 20140516
  9. MUCOSOLVAN [Concomitant]
     Active Substance: AMBROXOL\CLENBUTEROL
     Dosage: AS REQUIRED
     Route: 065
  10. ATARAX [Concomitant]
     Active Substance: HYDROXYZINE\HYDROXYZINE HYDROCHLORIDE
     Route: 065
     Dates: start: 20140509

REACTIONS (15)
  - Facial paresis [Recovering/Resolving]
  - Burning sensation [Recovered/Resolved]
  - Fatigue [Recovered/Resolved]
  - Ear disorder [Recovering/Resolving]
  - Insomnia [Recovered/Resolved]
  - Retinal detachment [Recovering/Resolving]
  - Gingival swelling [Recovering/Resolving]
  - Headache [Recovering/Resolving]
  - Pruritus [Recovering/Resolving]
  - Myalgia [Recovering/Resolving]
  - Hypoaesthesia oral [Recovering/Resolving]
  - Skin disorder [Recovering/Resolving]
  - Deafness [Recovering/Resolving]
  - Anaemia [Recovered/Resolved]
  - Arthralgia [Recovered/Resolved]

NARRATIVE: CASE EVENT DATE: 20140222
